FAERS Safety Report 9648423 (Version 1)
Quarter: 2013Q4

REPORT INFORMATION
  Report Type: Spontaneous
  Country: US (occurrence: None)
  Receive Date: 20131024
  Receipt Date: 20131024
  Transmission Date: 20140711
  Serious: Yes (Other)
  Sender: FDA-Public Use
  Company Number: ADE13-026

PATIENT
  Age: 79 Year
  Sex: Male
  Weight: 91.5 kg

DRUGS (2)
  1. HEPARIN SODIUM [Suspect]
     Dosage: 45,000 U TOTAL DOSE, IV
     Route: 042
     Dates: start: 20131008, end: 20131008
  2. ANTITHROMBIN III [Concomitant]

REACTIONS (1)
  - Coagulation time prolonged [None]
